FAERS Safety Report 8837479 (Version 1)
Quarter: 2012Q4

REPORT INFORMATION
  Report Type: 
  Country: US (occurrence: US)
  Receive Date: 20121012
  Receipt Date: 20121012
  Transmission Date: 20130627
  Serious: Yes (Other)
  Sender: FDA-Public Use
  Company Number: US-AMGEN-USASP2012064509

PATIENT
  Sex: Female

DRUGS (3)
  1. NEULASTA [Suspect]
     Indication: CHEMOTHERAPY
     Dosage: UNK
     Dates: start: 201010
  2. ARANESP [Suspect]
     Indication: PRODUCT USED FOR UNKNOWN INDICATION
     Dosage: UNK
  3. ANTINEOPLASTIC AGENTS [Concomitant]
     Indication: BREAST CANCER

REACTIONS (5)
  - Syncope [Unknown]
  - Adverse drug reaction [Unknown]
  - Malaise [Unknown]
  - Fall [Unknown]
  - Expired drug administered [Unknown]
